FAERS Safety Report 17582032 (Version 1)
Quarter: 2020Q1

REPORT INFORMATION
  Report Type: Spontaneous
  Country: FR (occurrence: FR)
  Receive Date: 20200325
  Receipt Date: 20200325
  Transmission Date: 20200409
  Serious: Yes (Hospitalization)
  Sender: FDA-Public Use
  Company Number: FR-MYLANLABS-2020M1030651

PATIENT
  Age: 77 Year
  Sex: Male
  Weight: 76.8 kg

DRUGS (11)
  1. LERCAPRESS                         /07931001/ [Concomitant]
     Active Substance: ENALAPRIL MALEATE\LERCANIDIPINE HYDROCHLORIDE
  2. ADENURIC [Concomitant]
     Active Substance: FEBUXOSTAT
  3. ATORVASTATINE                      /01326101/ [Concomitant]
     Active Substance: ATORVASTATIN
  4. XATRAL                             /00975302/ [Concomitant]
     Active Substance: ALFUZOSIN HYDROCHLORIDE
  5. KARDEGIC [Concomitant]
     Active Substance: ASPIRIN DL-LYSINE
  6. LEVOFLOXACINE                      /01278901/ [Concomitant]
     Active Substance: LEVOFLOXACIN
  7. METFORMIN [Suspect]
     Active Substance: METFORMIN HYDROCHLORIDE
     Indication: TYPE 2 DIABETES MELLITUS
     Route: 048
     Dates: end: 20200208
  8. FUCIDIN                            /00065702/ [Suspect]
     Active Substance: FUSIDATE SODIUM
     Indication: OSTEITIS
     Dosage: 6 DOSAGE FORM, QD
     Route: 048
     Dates: start: 20200113, end: 20200208
  9. PERMIXON [Concomitant]
     Active Substance: HERBALS\SAW PALMETTO
  10. LOVENOX [Concomitant]
     Active Substance: ENOXAPARIN SODIUM
  11. RILMENIDINE [Concomitant]
     Active Substance: RILMENIDINE

REACTIONS (4)
  - Acute kidney injury [Recovered/Resolved]
  - Diarrhoea [Recovered/Resolved]
  - Hypovolaemic shock [Recovered/Resolved]
  - Vomiting [Recovered/Resolved]

NARRATIVE: CASE EVENT DATE: 202002
